FAERS Safety Report 24260825 (Version 3)
Quarter: 2024Q4

REPORT INFORMATION
  Report Type: Report from Study
  Country: CA (occurrence: CA)
  Receive Date: 20240828
  Receipt Date: 20241029
  Transmission Date: 20250115
  Serious: Yes (Hospitalization, Other)
  Sender: HLS THERAPEUTICS
  Company Number: CA-HLS-202402096

PATIENT
  Age: 34 Year
  Sex: Male

DRUGS (1)
  1. CLOZARIL [Suspect]
     Active Substance: CLOZAPINE
     Indication: Schizophrenia
     Route: 048
     Dates: start: 20240621

REACTIONS (1)
  - COVID-19 [Recovered/Resolved]

NARRATIVE: CASE EVENT DATE: 20240818
